FAERS Safety Report 7283381-3 (Version None)
Quarter: 2011Q1

REPORT INFORMATION
  Report Type: 
  Country: None (occurrence: None)
  Receive Date: 20110209
  Receipt Date: 20100710
  Transmission Date: 20110831
  Serious: No
  Sender: FDA-Public Use
  Company Number: A0871480A

PATIENT
  Sex: Female

DRUGS (1)
  1. PAXIL [Suspect]
     Route: 048
     Dates: start: 20100426

REACTIONS (5)
  - IRRITABILITY [None]
  - VERTIGO [None]
  - GAIT DISTURBANCE [None]
  - DEPRESSION [None]
  - MENTAL STATUS CHANGES [None]
